FAERS Safety Report 6858854-5 (Version None)
Quarter: 2010Q3

REPORT INFORMATION
  Report Type: 
  Country: None (occurrence: None)
  Receive Date: 20100719
  Receipt Date: 20080312
  Transmission Date: 20110219
  Serious: Yes (Other)
  Sender: FDA-Public Use
  Company Number: US-PFIZER INC-2008014143

PATIENT
  Sex: Female
  Weight: 115.2 kg

DRUGS (4)
  1. CHANTIX [Suspect]
     Indication: SMOKING CESSATION THERAPY
     Dates: end: 20080211
  2. ALTACE [Concomitant]
     Indication: HYPERTENSION
  3. ASPIRIN [Concomitant]
     Indication: ANTICOAGULANT THERAPY
  4. PRENATAL VITAMINS [Concomitant]

REACTIONS (3)
  - AGGRESSION [None]
  - NIGHTMARE [None]
  - PSYCHOTIC DISORDER [None]
